FAERS Safety Report 4650740-4 (Version None)
Quarter: 2005Q2

REPORT INFORMATION
  Report Type: 
  Country: None (occurrence: None)
  Receive Date: 20050503
  Receipt Date: 20040827
  Transmission Date: 20051028
  Serious: Yes (Hospitalization)
  Sender: FDA-Public Use
  Company Number: US-2004-BP-07337BP

PATIENT
  Age: 70 Year
  Sex: Female

DRUGS (1)
  1. CLONIDINE HCL [Suspect]
     Indication: HYPERTENSION
     Route: 048
     Dates: start: 20040801, end: 20040824

REACTIONS (3)
  - LOCALISED INFECTION [None]
  - OEDEMA PERIPHERAL [None]
  - SKIN INFLAMMATION [None]
